FAERS Safety Report 5883460-9 (Version None)
Quarter: 2008Q3

REPORT INFORMATION
  Report Type: 
  Country: None (occurrence: None)
  Receive Date: 20080912
  Receipt Date: 20080912
  Transmission Date: 20090109
  Serious: Yes (Hospitalization)
  Sender: FDA-Public Use
  Company Number: None

PATIENT
  Age: 90 Year
  Sex: Female
  Weight: 52.1637 kg

DRUGS (15)
  1. AVELOX [Suspect]
     Indication: BRONCHITIS
     Dosage: Q DAY PO
     Route: 048
     Dates: start: 20080603, end: 20080606
  2. MUCINEX DM [Suspect]
     Indication: BRONCHITIS
     Dosage: BID PO
     Route: 048
     Dates: start: 20080603, end: 20080606
  3. ADVAIR DISKUS 100/50 [Concomitant]
  4. COMBIVENT [Concomitant]
  5. COUMADIN [Concomitant]
  6. ALDACTONE [Concomitant]
  7. COREG [Concomitant]
  8. LANOXIN [Concomitant]
  9. LISINOPRIL [Concomitant]
  10. POTASSIUM CHLORIDE [Concomitant]
  11. SYNTHROID [Concomitant]
  12. SINGULAIR [Concomitant]
  13. FUROSEMIDE [Concomitant]
  14. LOVASTATIN [Concomitant]
  15. FLONASE [Concomitant]

REACTIONS (2)
  - ABASIA [None]
  - CONFUSIONAL STATE [None]
